FAERS Safety Report 26130129 (Version 1)
Quarter: 2025Q4

REPORT INFORMATION
  Report Type: Spontaneous
  Country: CN (occurrence: CN)
  Receive Date: 20251208
  Receipt Date: 20251208
  Transmission Date: 20260117
  Serious: Yes (Other)
  Sender: ALEXION PHARMACEUTICALS
  Company Number: CN-ASTRAZENECA-202512CHN004353CN

PATIENT
  Age: 50 Year
  Sex: Female
  Weight: 60 kg

DRUGS (1)
  1. DAPAGLIFLOZIN [Suspect]
     Active Substance: DAPAGLIFLOZIN
     Indication: Chest pain
     Dosage: 10 MILLIGRAM, QD
     Dates: start: 20251121, end: 20251122

REACTIONS (1)
  - White blood cells urine positive [Unknown]

NARRATIVE: CASE EVENT DATE: 20251122
